FAERS Safety Report 8239113-5 (Version None)
Quarter: 2012Q1

REPORT INFORMATION
  Report Type: 
  Country: None (occurrence: None)
  Receive Date: 20120328
  Receipt Date: 20120320
  Transmission Date: 20120608
  Serious: Yes (Hospitalization)
  Sender: FDA-Public Use
  Company Number: US-AMGEN-USASP2012019054

PATIENT
  Sex: Male

DRUGS (11)
  1. DEXAMETHASONE [Suspect]
     Indication: NON-HODGKIN'S LYMPHOMA
     Dosage: 40 MG, UNK
     Route: 048
     Dates: start: 20120217, end: 20120222
  2. VALTREX [Concomitant]
  3. FLUCONAZOLE [Concomitant]
  4. CYCLOPHOSPHAMIDE [Suspect]
     Indication: NON-HODGKIN'S LYMPHOMA
     Dosage: 630 MG, Q12H
     Route: 042
     Dates: start: 20120217, end: 20120222
  5. PEGFILGRASTIM [Suspect]
     Indication: NON-HODGKIN'S LYMPHOMA
     Route: 058
  6. CIPROFLOXACIN [Concomitant]
  7. DOXORUBICIN HCL [Suspect]
     Indication: NON-HODGKIN'S LYMPHOMA
     Dosage: 56.5 MG, UNK
     Route: 042
     Dates: start: 20120217, end: 20120222
  8. VINCRISTINE [Suspect]
     Indication: NON-HODGKIN'S LYMPHOMA
     Dosage: 2 MG, UNK
     Route: 042
     Dates: start: 20120217, end: 20120222
  9. RITUXIMAB [Suspect]
     Indication: NON-HODGKIN'S LYMPHOMA
     Dosage: 787.5 MG, UNK
     Route: 042
     Dates: start: 20120217, end: 20120222
  10. METOPROLOL SUCCINATE [Concomitant]
  11. MS CONTIN [Concomitant]

REACTIONS (2)
  - DEEP VEIN THROMBOSIS [None]
  - FEBRILE NEUTROPENIA [None]
